FAERS Safety Report 6198498-4 (Version None)
Quarter: 2009Q2

REPORT INFORMATION
  Report Type: 
  Country: None (occurrence: None)
  Receive Date: 20090521
  Receipt Date: 20090514
  Transmission Date: 20091009
  Serious: Yes (Other)
  Sender: FDA-Public Use
  Company Number: PHEH2009US04856

PATIENT

DRUGS (2)
  1. EXJADE [Suspect]
  2. TRANSFUSIONS [Concomitant]

REACTIONS (1)
  - JAUNDICE [None]
